FAERS Safety Report 22038164 (Version 1)
Quarter: 2023Q1

REPORT INFORMATION
  Report Type: Spontaneous
  Country: US (occurrence: US)
  Receive Date: 20230227
  Receipt Date: 20230227
  Transmission Date: 20230417
  Serious: No
  Sender: FDA-Public Use
  Company Number: US-IGSA-BIG0019501

PATIENT
  Sex: Female
  Weight: 77 kg

DRUGS (15)
  1. PROLASTIN-C LIQUID [Suspect]
     Active Substance: .ALPHA.1-PROTEINASE INHIBITOR HUMAN
     Indication: Alpha-1 antitrypsin deficiency
     Dosage: 4620 MILLIGRAM, Q.WK.
     Route: 042
     Dates: start: 20220909
  2. PROLASTIN-C LIQUID [Suspect]
     Active Substance: .ALPHA.1-PROTEINASE INHIBITOR HUMAN
     Dosage: 4620 MILLIGRAM, Q.WK.
     Route: 042
     Dates: start: 20210318
  3. ALBUTEROL SULFATE [Concomitant]
     Active Substance: ALBUTEROL SULFATE
  4. BREO ELLIPTA [Concomitant]
     Active Substance: FLUTICASONE FUROATE\VILANTEROL TRIFENATATE
  5. CHANTIX [Concomitant]
     Active Substance: VARENICLINE TARTRATE
  6. CEFIXIME [Concomitant]
     Active Substance: CEFIXIME
  7. GABAPENTIN [Concomitant]
     Active Substance: GABAPENTIN
  8. HYDRALAZINE [Concomitant]
     Active Substance: HYDRALAZINE HYDROCHLORIDE
  9. LINZESS [Concomitant]
     Active Substance: LINACLOTIDE
  10. LIPITOR [Concomitant]
     Active Substance: ATORVASTATIN CALCIUM
  11. LISINOPRIL [Concomitant]
     Active Substance: LISINOPRIL
  12. METOPROLOL [Concomitant]
     Active Substance: METOPROLOL
  13. VITAMIN D NOS [Concomitant]
     Active Substance: VITAMIN D NOS
  14. ZOFRAN [Concomitant]
     Active Substance: ONDANSETRON HYDROCHLORIDE
  15. OXYCODONE AND ACETAMINOPHEN [Concomitant]
     Active Substance: ACETAMINOPHEN\OXYCODONE HYDROCHLORIDE

REACTIONS (3)
  - Neuropathy peripheral [Recovering/Resolving]
  - Condition aggravated [Recovering/Resolving]
  - Fatigue [Recovering/Resolving]
